FAERS Safety Report 13192339 (Version 1)
Quarter: 2017Q1

REPORT INFORMATION
  Report Type: Spontaneous
  Country: US (occurrence: US)
  Receive Date: 20170206
  Receipt Date: 20170206
  Transmission Date: 20170428
  Serious: No
  Sender: FDA-Public Use
  Company Number: None

PATIENT
  Age: 53 Year
  Sex: Female

DRUGS (5)
  1. XIFAXAN [Concomitant]
     Active Substance: RIFAXIMIN
  2. VITAMIN D3 [Concomitant]
     Active Substance: CHOLECALCIFEROL
  3. OCALIVA [Suspect]
     Active Substance: OBETICHOLIC ACID
     Indication: BILIARY CIRRHOSIS PRIMARY
     Route: 048
     Dates: start: 20170116
  4. VITAMIN C [Concomitant]
     Active Substance: ASCORBIC ACID
  5. URSODIOL. [Concomitant]
     Active Substance: URSODIOL

REACTIONS (1)
  - Fatigue [None]

NARRATIVE: CASE EVENT DATE: 201701
